FAERS Safety Report 9663040 (Version 1)
Quarter: 2013Q4

REPORT INFORMATION
  Report Type: Report from Study
  Country: LB (occurrence: LB)
  Receive Date: 20131031
  Receipt Date: 20131031
  Transmission Date: 20140711
  Serious: Yes (Death)
  Sender: FDA-Public Use
  Company Number: LB-SA-2013SA109855

PATIENT
  Age: 61 Year
  Sex: Male

DRUGS (5)
  1. LANTUS SOLOSTAR [Suspect]
     Indication: PRODUCT USED FOR UNKNOWN INDICATION
     Dosage: DOSE:20 UNIT(S)
     Route: 058
  2. SOLOSTAR [Concomitant]
     Indication: DEVICE THERAPY
  3. INSULIN MIXTARD [Concomitant]
     Indication: DIABETES MELLITUS
     Route: 058
  4. NOVONORM [Concomitant]
     Indication: DIABETES MELLITUS
     Route: 048
  5. ASPIRIN [Concomitant]
     Route: 048

REACTIONS (2)
  - Embolism [Fatal]
  - General physical health deterioration [Fatal]
